FAERS Safety Report 25779073 (Version 2)
Quarter: 2025Q3

REPORT INFORMATION
  Report Type: Spontaneous
  Country: IN (occurrence: IN)
  Receive Date: 20250909
  Receipt Date: 20250909
  Transmission Date: 20251020
  Serious: Yes (Other)
  Sender: PFIZER
  Company Number: IN-PFIZER INC-PV202500106164

PATIENT
  Age: 53 Year
  Sex: Female

DRUGS (18)
  1. LORLATINIB [Suspect]
     Active Substance: LORLATINIB
     Dosage: 100 MG, 1X/DAY
     Route: 048
  2. LORLATINIB [Suspect]
     Active Substance: LORLATINIB
     Dosage: 75 MG, 1X/DAY
     Route: 048
  3. TELVAS [Concomitant]
     Dosage: 40 MG, 1X/DAY
  4. THYROX [Concomitant]
     Dosage: 25 UG, 1X/DAY
  5. BEMDAC [Concomitant]
     Dosage: 180 MG, 1X/DAY (AT LUNCH)
  6. ICOSAPENT [Concomitant]
     Active Substance: ICOSAPENT
     Dosage: 1 G, 2X/DAY (AT 9AM AND 9PM)
  7. LINVAS [Concomitant]
     Dosage: 4 MG, 1X/DAY
  8. ALBUTEROL\IPRATROPIUM BROMIDE [Concomitant]
     Active Substance: ALBUTEROL\IPRATROPIUM BROMIDE
     Dosage: UNK, 2X/DAY
  9. BUDESONIDE [Concomitant]
     Active Substance: BUDESONIDE
     Dosage: UNK UNK, 2X/DAY
  10. MUCAINE [ALUMINIUM HYDROXIDE GEL;MAGNESIUM HYDROXIDE;OXETACAINE] [Concomitant]
     Dosage: 3X/DAY (2 TSP THRICE DAILY)
  11. ACOGUT [Concomitant]
     Dosage: 100 MG, 3X/DAY
  12. PROBIOTICS NOS [Concomitant]
     Active Substance: PROBIOTICS NOS
     Dosage: UNK, 1X/DAY (CAPSULE ONCE DAILY.)
  13. PANTOCID D [Concomitant]
     Dosage: 40 MG, 1X/DAY (BEFORE BREAKFAST)
  14. SOLONEX CO [Concomitant]
  15. ETHAMBUTOL HYDROCHLORIDE [Concomitant]
     Active Substance: ETHAMBUTOL HYDROCHLORIDE
     Dosage: 600 MG, 1X/DAY (BEFORE BREAKFAST TO CONTINUE (PLAN FOR 12 MONTHS))
  16. PYRAZINAMIDE [Concomitant]
     Active Substance: PYRAZINAMIDE
     Dosage: 1250 MG, 1X/DAY ((750+500) 1 TABLET BEFORE BREAKFAST TO CONTINUE (PLAN FOR 12 MONTHS))
  17. ALEVOMEK [Concomitant]
     Dosage: 750 MG, 1X/DAY (AFTER BREAKFAST TO CONTINUE (PLANFOR 12 MONTHS))
  18. PYRIDOXINE HYDROCHLORIDE [Concomitant]
     Active Substance: PYRIDOXINE HYDROCHLORIDE
     Dosage: 20 MG, 1X/DAY (1/2 TABLET AFTER BREAKFAST TO CONTINUE (PLAN FOR 12 MONTHS))

REACTIONS (12)
  - Malignant neoplasm progression [Unknown]
  - Necrosis [Unknown]
  - Tuberculosis [Unknown]
  - Hypothyroidism [Unknown]
  - Metastases to lymph nodes [Unknown]
  - Dyslipidaemia [Unknown]
  - Full blood count abnormal [Unknown]
  - Hypertension [Unknown]
  - Platelet count decreased [Unknown]
  - Laparotomy [Unknown]
  - Haemoglobin decreased [Unknown]
  - Blood cholesterol increased [Unknown]
